FAERS Safety Report 4307493-9 (Version None)
Quarter: 2004Q1

REPORT INFORMATION
  Report Type: 
  Country: None (occurrence: None)
  Receive Date: 20040226
  Receipt Date: 20040216
  Transmission Date: 20041129
  Serious: Yes (Disabling)
  Sender: FDA-Public Use
  Company Number: K200400223

PATIENT
  Age: 69 Year
  Sex: Male

DRUGS (6)
  1. ALTACE [Suspect]
     Indication: HYPERTENSION
     Dosage: SEE IMAGE
     Route: 048
     Dates: end: 20040101
  2. CELEBREX [Concomitant]
  3. PREVACID [Concomitant]
  4. ACETYLSALICYLIC ACID ENTERIC COATED (ACETYLSALICYLIC ACID) [Concomitant]
  5. DURAGESIC [Concomitant]
  6. FLOMAX MR (TAMSULOSIN HYDROCHLORIDE) [Concomitant]

REACTIONS (6)
  - DRY THROAT [None]
  - DYSPHAGIA [None]
  - FEELING ABNORMAL [None]
  - INCREASED UPPER AIRWAY SECRETION [None]
  - LIP DRY [None]
  - PAIN [None]
